FAERS Safety Report 23816419 (Version 2)
Quarter: 2024Q2

REPORT INFORMATION
  Report Type: Report from Study
  Country: US (occurrence: US)
  Receive Date: 20240503
  Receipt Date: 20240614
  Transmission Date: 20240716
  Serious: Yes (Other)
  Sender: FDA-Public Use
  Company Number: US-PARATEK PHARMACEUTICALS, INC.-2024PTK00350

PATIENT
  Age: 76 Year
  Sex: Male

DRUGS (7)
  1. NUZYRA [Suspect]
     Active Substance: OMADACYCLINE
     Dosage: 300 MG, 1X/DAY
     Dates: start: 20240221
  2. VITAMIN B [Concomitant]
     Active Substance: VITAMIN B
  3. MAGNESIUM OXIDE [Concomitant]
     Active Substance: MAGNESIUM OXIDE
  4. LORATADINE [Concomitant]
     Active Substance: LORATADINE
  5. FISH OIL [Concomitant]
     Active Substance: FISH OIL
  6. ZINC [Concomitant]
     Active Substance: PYRITHIONE ZINC\ZINC\ZINC CHLORIDE
  7. CLOTRIMAZOLE [Concomitant]
     Active Substance: CLOTRIMAZOLE
     Dosage: 300 MG, 1X/DAY
     Dates: start: 20240221

REACTIONS (2)
  - Cellulitis [Unknown]
  - Blood pressure increased [Unknown]

NARRATIVE: CASE EVENT DATE: 20240101
